FAERS Safety Report 6744192-8 (Version None)
Quarter: 2010Q2

REPORT INFORMATION
  Report Type: 
  Country: None (occurrence: None)
  Receive Date: 20100525
  Receipt Date: 20100512
  Transmission Date: 20101027
  Serious: Yes (Hospitalization, Other)
  Sender: FDA-Public Use
  Company Number: 7004733

PATIENT
  Age: 24 Year
  Sex: Female

DRUGS (4)
  1. REBIF [Suspect]
     Indication: MULTIPLE SCLEROSIS
     Dosage: 44 MCG, 3 IN 1 WK, SUBCUTANEOUS
     Route: 058
     Dates: start: 20091225
  2. CARDIZEM [Concomitant]
  3. SERTRALINE [Concomitant]
  4. IBUPROFEN [Concomitant]

REACTIONS (8)
  - ARTHRALGIA [None]
  - CARDIAC DISORDER [None]
  - CARDIAC ENZYMES INCREASED [None]
  - CONGENITAL ECTOPIC PANCREAS [None]
  - DISEASE PROGRESSION [None]
  - HEADACHE [None]
  - INFREQUENT BOWEL MOVEMENTS [None]
  - PAIN [None]
